FAERS Safety Report 9171474 (Version 4)
Quarter: 2013Q3

REPORT INFORMATION
  Report Type: Report from Study
  Country: DE (occurrence: DE)
  Receive Date: 20130319
  Receipt Date: 20130923
  Transmission Date: 20140515
  Serious: Yes (Other)
  Sender: FDA-Public Use
  Company Number: PHHY2013DE015548

PATIENT
  Sex: Female
  Weight: 52 kg

DRUGS (15)
  1. AMN107 [Suspect]
     Indication: CHRONIC MYELOID LEUKAEMIA
     Dosage: 300 MG, DAILY
     Route: 048
     Dates: start: 20120528
  2. MARCUMAR [Concomitant]
     Indication: PULMONARY EMBOLISM
     Route: 048
     Dates: start: 2002, end: 201212
  3. METHYLPHENIDATE [Concomitant]
     Indication: MENTAL DISORDER
     Dosage: 40 MG, DAILY
     Route: 048
     Dates: start: 2012, end: 2012
  4. METHYLPHENIDATE [Concomitant]
     Indication: ANXIETY DISORDER
  5. METHYLPHENIDATE [Concomitant]
     Indication: DEPRESSION
  6. TRAZODONE [Concomitant]
     Dosage: 250 MG, DAILY
     Route: 048
     Dates: start: 2007
  7. TRAZODONE [Concomitant]
     Dosage: 250 MG, DALIY
     Dates: start: 201111
  8. TORASEMIDE [Concomitant]
     Indication: PLEURAL EFFUSION
     Dosage: 10 MG, DAILY
     Route: 048
     Dates: start: 201204, end: 201206
  9. TORASEMIDE [Concomitant]
     Indication: PERICARDIAL EFFUSION
  10. SPIRONOLACTONE [Concomitant]
     Indication: PLEURAL EFFUSION
     Dosage: 50 MG, DAILY
     Route: 048
     Dates: start: 201204, end: 201206
  11. SPIRONOLACTONE [Concomitant]
     Indication: PERICARDIAL EFFUSION
  12. LAMOTRIGINE [Concomitant]
     Indication: DEPRESSION
     Dosage: 100 MG, DAILY
     Route: 048
     Dates: start: 2012, end: 2012
  13. LAMOTRIGINE [Concomitant]
     Indication: MENTAL DISORDER
  14. OMEPRAZOLE [Concomitant]
     Indication: DYSPEPSIA
     Dosage: 20-40MG, DAILY
     Route: 048
     Dates: start: 201206
  15. MCP [Concomitant]
     Indication: NAUSEA
     Dosage: 30 MG, DAILY
     Route: 048
     Dates: start: 200811

REACTIONS (1)
  - Deep vein thrombosis [Not Recovered/Not Resolved]
